FAERS Safety Report 7487754-5 (Version None)
Quarter: 2011Q2

REPORT INFORMATION
  Report Type: 
  Country: None (occurrence: None)
  Receive Date: 20110518
  Receipt Date: 20110509
  Transmission Date: 20111010
  Serious: Yes (Hospitalization)
  Sender: FDA-Public Use
  Company Number: PHHY2009EE37494

PATIENT
  Sex: Male

DRUGS (2)
  1. CLOZAPINE [Suspect]
     Indication: SCHIZOPHRENIA
     Dosage: 900MG/DAY
     Route: 048
  2. CLOZAPINE [Suspect]
     Dosage: 1900MG/DAY
     Route: 048

REACTIONS (4)
  - COMA [None]
  - SCHIZOPHRENIA [None]
  - OVERDOSE [None]
  - CONVULSION [None]
